FAERS Safety Report 10191188 (Version 3)
Quarter: 2014Q2

REPORT INFORMATION
  Report Type: Report from Study
  Country: CA (occurrence: CA)
  Receive Date: 20140523
  Receipt Date: 20140627
  Transmission Date: 20141212
  Serious: Yes (Hospitalization, Other)
  Sender: FDA-Public Use
  Company Number: CA-BEH-2014042710

PATIENT
  Age: 56 Year
  Sex: Male
  Weight: 98.75 kg

DRUGS (23)
  1. HIZENTRA OR PLACEBO [Suspect]
     Indication: DIABETIC NEUROPATHY
     Dosage: X 4 MONTHS THEN 2 MONTH WASHOUT;300 MG/KG WEEKLY
     Route: 058
     Dates: start: 20131007
  2. METFORMIN [Concomitant]
     Indication: DIABETES MELLITUS
     Dosage: START IN 2000
     Route: 048
  3. ACCUPRIL [Concomitant]
     Indication: HYPERTENSION
     Dosage: 2000
     Route: 048
     Dates: end: 20140430
  4. HYDRALAZINE [Concomitant]
     Indication: HYPERTENSION
     Dosage: START 2000
     Route: 048
  5. REPAGLINIDE [Concomitant]
     Indication: DIABETES MELLITUS
     Route: 048
     Dates: start: 20131218
  6. GABAPENTIN [Concomitant]
     Indication: DIABETIC NEUROPATHY
     Dosage: START 2010
     Route: 048
  7. GABAPENTIN [Concomitant]
     Route: 048
     Dates: start: 20140506
  8. MELATONIN [Concomitant]
     Indication: INSOMNIA
     Dosage: START 2012;STOP MAR2014
     Route: 048
  9. ATORVASTATIN [Concomitant]
     Indication: HYPERLIPIDAEMIA
     Route: 048
     Dates: start: 20131206
  10. METOPROLOL [Concomitant]
     Indication: DIABETES MELLITUS
     Route: 048
     Dates: start: 20131223
  11. LANTUS INSULIN [Concomitant]
     Indication: DIABETES MELLITUS
     Dosage: 60-70 UNITS DAILY
     Route: 058
     Dates: start: 20131219
  12. ASPIRIN [Concomitant]
     Indication: CARDIOVASCULAR EVENT PROPHYLAXIS
     Dosage: START 2000
     Route: 048
  13. TRAZODONE [Concomitant]
     Indication: INSOMNIA
     Route: 048
     Dates: start: 20140103
  14. OMEPRAZOLE [Concomitant]
     Indication: GASTROOESOPHAGEAL REFLUX DISEASE
     Route: 048
     Dates: start: 20131220, end: 20140430
  15. CYMBALTA [Concomitant]
     Indication: DIABETIC NEUROPATHY
     Dosage: 90 MG
     Route: 048
     Dates: start: 20131218
  16. OXYCODONE [Concomitant]
     Indication: DIABETIC NEUROPATHY
     Dosage: 5 MG Q6HR
     Route: 048
     Dates: start: 20140501
  17. NABILONE [Concomitant]
     Indication: DIABETIC NEUROPATHY
     Route: 048
     Dates: start: 20140506, end: 20140510
  18. NABILONE [Concomitant]
     Route: 048
     Dates: start: 20140511
  19. BECLOMETHASONE [Concomitant]
     Indication: NASAL CONGESTION
     Dosage: 2 SPRAYS
     Route: 045
     Dates: start: 20140513
  20. DOCUSATE SODIUM [Concomitant]
     Indication: CONSTIPATION
     Route: 048
     Dates: start: 20140506
  21. ZOPLICLONE [Concomitant]
     Indication: INSOMNIA
     Dosage: 7.5 MG QHS
     Route: 048
     Dates: start: 20140501
  22. PANTOPRAZOLE [Concomitant]
     Indication: GASTROOESOPHAGEAL REFLUX DISEASE
     Route: 048
     Dates: start: 20140501
  23. RAMIPRIL [Concomitant]
     Indication: HYPERTENSION
     Route: 048
     Dates: start: 20140501

REACTIONS (3)
  - Depression [Recovered/Resolved]
  - Suicidal ideation [Recovered/Resolved]
  - Off label use [None]
